FAERS Safety Report 24893065 (Version 1)
Quarter: 2025Q1

REPORT INFORMATION
  Report Type: Spontaneous
  Country: DE (occurrence: DE)
  Receive Date: 20250128
  Receipt Date: 20250128
  Transmission Date: 20250408
  Serious: Yes (Hospitalization)
  Sender: ROCHE
  Company Number: None

PATIENT
  Age: 45 Year
  Sex: Female
  Weight: 69 kg

DRUGS (1)
  1. ENTRECTINIB [Suspect]
     Active Substance: ENTRECTINIB
     Indication: Non-small cell lung cancer
     Dosage: 600 MG / TAG
     Route: 048
     Dates: start: 20241231, end: 20250102

REACTIONS (2)
  - Ventricular tachycardia [Recovered/Resolved]
  - Brugada syndrome [Recovering/Resolving]

NARRATIVE: CASE EVENT DATE: 20250102
